FAERS Safety Report 16540315 (Version 13)
Quarter: 2020Q4

REPORT INFORMATION
  Report Type: Spontaneous
  Country: US (occurrence: US)
  Receive Date: 20190703
  Receipt Date: 20201026
  Transmission Date: 20210113
  Serious: Yes (Hospitalization)
  Sender: FDA-Public Use
  Company Number: US-PFIZER INC-2019283273

PATIENT
  Age: 55 Year
  Sex: Male
  Weight: 158 kg

DRUGS (8)
  1. ALLOPURINOL. [Concomitant]
     Active Substance: ALLOPURINOL
     Dosage: 300 MG, UNK
  2. CYMBALTA [Concomitant]
     Active Substance: DULOXETINE HYDROCHLORIDE
     Dosage: 300 MG, 2X/DAY
  3. LISINOPRIL. [Concomitant]
     Active Substance: LISINOPRIL
     Indication: HYPERTENSION
     Dosage: 10 MG, UNK
  4. LYRICA [Suspect]
     Active Substance: PREGABALIN
     Indication: CERVICAL RADICULOPATHY
     Dosage: 75 MG, 4X/DAY (TAKE 1 CAPSULE BY MOUTH 4 TIMES A DAY)
     Route: 048
     Dates: start: 20190823
  5. LYRICA [Suspect]
     Active Substance: PREGABALIN
     Indication: LUMBAR RADICULOPATHY
     Dosage: 75 MG, 2X/DAY (1 CAPSULE TWO TIMES A DAY FOR 30 DAYS)
     Route: 048
  6. TRIAMTERENE HCTZ [Concomitant]
     Active Substance: HYDROCHLOROTHIAZIDE\TRIAMTERENE
     Indication: DIURETIC THERAPY
     Dosage: 75 MG, UNK
  7. LYRICA [Suspect]
     Active Substance: PREGABALIN
     Indication: NERVE INJURY
     Dosage: 150 MG, DAILY (2 PILLS A DAY)
     Route: 048
  8. MOBIC [Concomitant]
     Active Substance: MELOXICAM
     Dosage: 15 MG, 1X/DAY

REACTIONS (3)
  - Intentional product use issue [Unknown]
  - Head injury [Unknown]
  - Therapeutic response unexpected [Unknown]

NARRATIVE: CASE EVENT DATE: 20130311
